FAERS Safety Report 6708514-6 (Version None)
Quarter: 2010Q2

REPORT INFORMATION
  Report Type: 
  Country: None (occurrence: None)
  Receive Date: 20100503
  Receipt Date: 20090223
  Transmission Date: 20101027
  Serious: No
  Sender: FDA-Public Use
  Company Number: US-ASTRAZENECA-2009UW04912

PATIENT
  Age: 73 Year
  Sex: Female

DRUGS (9)
  1. NEXIUM [Suspect]
     Indication: GASTROOESOPHAGEAL REFLUX DISEASE
     Route: 048
  2. PLAQUENIL [Concomitant]
  3. CELEBREX [Concomitant]
  4. ZOCOR [Concomitant]
  5. ASPIRIN [Concomitant]
  6. METFORMIN [Concomitant]
  7. LORCET PLUSZ [Concomitant]
  8. XANAX [Concomitant]
  9. CHLORTHALIDONE [Concomitant]

REACTIONS (2)
  - OROPHARYNGEAL PAIN [None]
  - SINUSITIS [None]
